FAERS Safety Report 20141733 (Version 1)
Quarter: 2021Q4

REPORT INFORMATION
  Report Type: Spontaneous
  Country: CA (occurrence: CA)
  Receive Date: 20211202
  Receipt Date: 20211202
  Transmission Date: 20220303
  Serious: Yes (Other)
  Sender: FDA-Public Use
  Company Number: CA-BAYER-2021A242610

PATIENT
  Age: 39 Year
  Sex: Male

DRUGS (2)
  1. CLARITIN [Suspect]
     Active Substance: LORATADINE
     Indication: Eczema
     Dosage: UNK
     Route: 048
     Dates: start: 20211031
  2. CETIRIZINE HYDROCHLORIDE [Concomitant]
     Active Substance: CETIRIZINE HYDROCHLORIDE
     Indication: Eczema

REACTIONS (2)
  - Haematochezia [None]
  - Abdominal discomfort [None]

NARRATIVE: CASE EVENT DATE: 20211031
